FAERS Safety Report 8349166-1 (Version None)
Quarter: 2012Q2

REPORT INFORMATION
  Report Type: 
  Country: None (occurrence: None)
  Receive Date: 20120510
  Receipt Date: 20120507
  Transmission Date: 20120825
  Serious: Yes (Hospitalization)
  Sender: FDA-Public Use
  Company Number: ES-ABBOTT-12P-144-0933000-00

PATIENT
  Age: 59 Year
  Sex: Male

DRUGS (6)
  1. EPROSARTAN MESYLATE [Suspect]
     Indication: HYPERTENSION
     Route: 048
     Dates: start: 20090201, end: 20110711
  2. GLYBURIDE [Concomitant]
     Indication: DIABETES MELLITUS
     Route: 048
     Dates: end: 20110711
  3. LANTUS [Concomitant]
     Indication: DIABETES MELLITUS
     Dosage: 100 UI/ML
     Route: 058
     Dates: start: 20100801, end: 20110711
  4. AMLODIPINE [Concomitant]
     Indication: HYPERTENSION
     Route: 048
     Dates: end: 20110711
  5. METFORMIN HCL [Concomitant]
     Indication: DIABETES MELLITUS
     Route: 048
     Dates: end: 20110711
  6. ASPIRIN [Concomitant]
     Indication: CARDIOVASCULAR EVENT PROPHYLAXIS
     Route: 048
     Dates: end: 20110711

REACTIONS (2)
  - RENAL FAILURE ACUTE [None]
  - HYPERKALAEMIA [None]
